FAERS Safety Report 12473281 (Version 1)
Quarter: 2016Q2

REPORT INFORMATION
  Report Type: Report from Study
  Country: BR (occurrence: BR)
  Receive Date: 20160616
  Receipt Date: 20160616
  Transmission Date: 20160815
  Serious: Yes (Other)
  Sender: FDA-Public Use
  Company Number: BR-ABBVIE-16P-020-1653867-00

PATIENT
  Sex: Female
  Weight: 90 kg

DRUGS (8)
  1. SYNTHROID [Suspect]
     Active Substance: LEVOTHYROXINE SODIUM
     Indication: HYPOTHYROIDISM
     Dosage: FASTING; DAILY DOSE: 100 MCG (1 TABLET)
     Route: 048
  2. SYNTHROID [Suspect]
     Active Substance: LEVOTHYROXINE SODIUM
     Dosage: FASTING; DAILY DOSE: 175 MCG (1 TABLET)
     Route: 048
     Dates: start: 2014
  3. SIMVASTATIN. [Concomitant]
     Active Substance: SIMVASTATIN
     Indication: BLOOD CHOLESTEROL
     Dosage: AT NIGHT; DAILY DOSE: 20MG
     Route: 048
     Dates: start: 2009
  4. DEPURA [Concomitant]
     Active Substance: CHOLECALCIFEROL
     Indication: VITAMIN D
     Route: 048
     Dates: start: 2014
  5. LEVOTHYROXINE SODIUM. [Concomitant]
     Active Substance: LEVOTHYROXINE SODIUM
     Indication: HYPOTHYROIDISM
     Dosage: FASTING; DAILY DOSE: 150MCG (1 TABLET)
     Route: 048
     Dates: start: 201605
  6. AMLODIPINE [Concomitant]
     Active Substance: AMLODIPINE BESYLATE
     Indication: HYPERTENSION
     Dosage: FORM STRENGTH: 40/5 MG; DAILY DOSE: 1 TABLET
     Route: 048
     Dates: start: 201605
  7. SYNTHROID [Suspect]
     Active Substance: LEVOTHYROXINE SODIUM
     Dosage: FASTING; DAILY DOSE: 150 MCG (1 TABLET)
     Route: 048
  8. SYNTHROID [Suspect]
     Active Substance: LEVOTHYROXINE SODIUM
     Dosage: FASTING; DAILY DOSE: 137 MCG (1 TABLET)
     Route: 048

REACTIONS (9)
  - Hypertension [Unknown]
  - Maternal exposure during pregnancy [Unknown]
  - Blood cholesterol increased [Unknown]
  - Blood thyroid stimulating hormone increased [Unknown]
  - Goitre [Recovered/Resolved]
  - Tracheal obstruction [Recovered/Resolved]
  - Benign neoplasm of thyroid gland [Recovered/Resolved]
  - Weight increased [Not Recovered/Not Resolved]
  - Tachycardia [Recovered/Resolved]

NARRATIVE: CASE EVENT DATE: 2004
